APPROVED DRUG PRODUCT: DDAVP (NEEDS NO REFRIGERATION)
Active Ingredient: DESMOPRESSIN ACETATE
Strength: 0.01MG/SPRAY
Dosage Form/Route: SPRAY, METERED;NASAL
Application: N017922 | Product #003
Applicant: FERRING PHARMACEUTICALS INC
Approved: Aug 7, 1996 | RLD: Yes | RS: No | Type: DISCN